FAERS Safety Report 4425272-9 (Version None)
Quarter: 2004Q3

REPORT INFORMATION
  Report Type: 
  Country: None (occurrence: None)
  Receive Date: 20040813
  Receipt Date: 20040621
  Transmission Date: 20050211
  Serious: Yes (Life-Threatening, Hospitalization, Other)
  Sender: FDA-Public Use
  Company Number: GR-AMGEN-US081451

PATIENT
  Age: 60 Year
  Sex: Female

DRUGS (6)
  1. ENBREL [Suspect]
     Indication: RHEUMATOID ARTHRITIS
     Route: 058
     Dates: start: 20021201, end: 20040615
  2. MEDROL [Concomitant]
  3. METHOTREXATE [Concomitant]
     Dates: start: 20031001, end: 20040101
  4. GLIMEPIRIDE [Concomitant]
     Dates: start: 20040101
  5. ARAVA [Concomitant]
     Dates: start: 20040101, end: 20040401
  6. SINTROM [Concomitant]
     Dates: start: 20040601

REACTIONS (4)
  - AORTIC THROMBOSIS [None]
  - BRAIN STEM THROMBOSIS [None]
  - NOSOCOMIAL INFECTION [None]
  - PULMONARY THROMBOSIS [None]
